FAERS Safety Report 7192168 (Version 2)
Quarter: 2012Q4

REPORT INFORMATION
  Report Type: 
  Country: ZA (occurrence: ZA)
  Receive Date: 20091129
  Receipt Date: 20121204
  Transmission Date: 20130627
  Serious: Yes (Death, Hospitalization)
  Sender: FDA-Public Use
  Company Number: PHHY2009ZA51298

PATIENT
  Age: 16 Year
  Sex: Female

DRUGS (1)
  1. CLOZAPINE [Suspect]
     Dosage: 10 g, UNK

REACTIONS (8)
  - Completed suicide [Fatal]
  - Acute respiratory distress syndrome [Fatal]
  - Rales [Fatal]
  - Loss of consciousness [Fatal]
  - Hypotension [Fatal]
  - Renal failure [Fatal]
  - Overdose [Fatal]
  - Exposure during pregnancy [Unknown]
